FAERS Safety Report 7564507-0 (Version None)
Quarter: 2011Q2

REPORT INFORMATION
  Report Type: 
  Country: None (occurrence: None)
  Receive Date: 20110622
  Receipt Date: 20110610
  Transmission Date: 20111010
  Serious: Yes (Other)
  Sender: FDA-Public Use
  Company Number: CA-GENENTECH-320314

PATIENT
  Sex: Female

DRUGS (1)
  1. XOLAIR [Suspect]
     Indication: ASTHMA
     Dosage: 375 MG, Q2W
     Route: 058
     Dates: start: 20080528

REACTIONS (7)
  - HYPERSENSITIVITY [None]
  - PAIN IN EXTREMITY [None]
  - COUGH [None]
  - BRONCHITIS [None]
  - ANAPHYLACTIC SHOCK [None]
  - INFLUENZA [None]
  - FATIGUE [None]
